FAERS Safety Report 6607045-1 (Version None)
Quarter: 2010Q1

REPORT INFORMATION
  Report Type: 
  Country: None (occurrence: None)
  Receive Date: 20100219
  Receipt Date: 20100208
  Transmission Date: 20100710
  Serious: Yes (Disabling)
  Sender: FDA-Public Use
  Company Number: OSCN-PR-1002S-0041

PATIENT
  Sex: Female

DRUGS (1)
  1. OMISCAN (GADODIAMIDE) [Suspect]
     Indication: DRUG USE FOR UNKNOWN INDICATION
     Dosage: NR, SINGLE DOSE

REACTIONS (1)
  - NEPHROGENIC SYSTEMIC FIBROSIS [None]
